FAERS Safety Report 8344410-9 (Version None)
Quarter: 2012Q2

REPORT INFORMATION
  Report Type: 
  Country: None (occurrence: None)
  Receive Date: 20120508
  Receipt Date: 20120427
  Transmission Date: 20120825
  Serious: Yes (Other)
  Sender: FDA-Public Use
  Company Number: US-ROCHE-1064104

PATIENT
  Sex: Male

DRUGS (3)
  1. LANTUS [Concomitant]
     Indication: DIABETES MELLITUS
  2. HUMALOG [Concomitant]
     Indication: DIABETES MELLITUS
  3. GANCICLOVIR [Suspect]
     Indication: PRODUCT USED FOR UNKNOWN INDICATION

REACTIONS (3)
  - BLOOD GLUCOSE INCREASED [None]
  - PULMONARY FUNCTION TEST DECREASED [None]
  - NASOPHARYNGITIS [None]
